FAERS Safety Report 5240775-5 (Version None)
Quarter: 2007Q1

REPORT INFORMATION
  Report Type: 
  Country: None (occurrence: None)
  Receive Date: 20070219
  Receipt Date: 20070206
  Transmission Date: 20070707
  Serious: Yes (Other)
  Sender: FDA-Public Use
  Company Number: US-ELI_LILLY_AND_COMPANY-US200701003502

PATIENT
  Age: 66 Year
  Sex: Female
  Weight: 101.59 kg

DRUGS (5)
  1. CYMBALTA [Suspect]
     Indication: DEPRESSION
     Dosage: 60 MG, UNK
     Dates: start: 20061101, end: 20061201
  2. LIPITOR [Concomitant]
     Dosage: 10 MG, UNK
     Dates: start: 20000101
  3. TOPROL-XL [Concomitant]
     Dosage: 50 UNK, UNK
     Dates: start: 19990101
  4. LOTREL [Concomitant]
     Dates: start: 20020101
  5. PROZAC [Concomitant]

REACTIONS (1)
  - ALANINE AMINOTRANSFERASE INCREASED [None]
